FAERS Safety Report 9969671 (Version 2)
Quarter: 2014Q2

REPORT INFORMATION
  Report Type: Spontaneous
  Country: US (occurrence: None)
  Receive Date: 20140304
  Receipt Date: 20140613
  Transmission Date: 20141212
  Serious: Yes (Hospitalization, Other)
  Sender: FDA-Public Use
  Company Number: 2014US003052

PATIENT
  Age: 64 Year
  Sex: Male
  Weight: 133 kg

DRUGS (7)
  1. ICLUSIG [Suspect]
     Indication: CHROMOSOME ANALYSIS ABNORMAL
     Route: 048
  2. ICLUSIG [Suspect]
     Route: 048
  3. METHOTREXATE (METHOTREXATE SODIUM) [Concomitant]
  4. RITUXAN (RITUXIMAB) [Concomitant]
  5. VINCRISTINE (VINCRISTINE SULFATE) [Concomitant]
  6. ASPARAGINASE (ASPARAGINASE) [Concomitant]
  7. DEXAMETHASONE (DEXAMETHASONE SODIUM PHOSPHATE) [Concomitant]

REACTIONS (12)
  - Tracheostomy [None]
  - Cardiac failure congestive [None]
  - Nutritional supplementation [None]
  - Respiratory failure [None]
  - Clostridium difficile infection [None]
  - Pleural effusion [None]
  - Chest X-ray abnormal [None]
  - Pseudomonas test positive [None]
  - Ejection fraction decreased [None]
  - Condition aggravated [None]
  - Catheter site extravasation [None]
  - General physical health deterioration [None]
